FAERS Safety Report 25865660 (Version 1)
Quarter: 2025Q3

REPORT INFORMATION
  Report Type: Spontaneous
  Country: US (occurrence: US)
  Receive Date: 20250930
  Receipt Date: 20250930
  Transmission Date: 20251021
  Serious: No
  Sender: SANOFI AVENTIS
  Company Number: US-SA-2025SA288034

PATIENT
  Sex: Female

DRUGS (11)
  1. DUPIXENT [Suspect]
     Active Substance: DUPILUMAB
     Indication: Asthma
     Dosage: 1 DF, QOW
     Route: 058
     Dates: start: 20240925
  2. AMOXICILLIN [Concomitant]
     Active Substance: AMOXICILLIN
  3. CEPHALEXIN [Concomitant]
     Active Substance: CEPHALEXIN
  4. LEVAQUIN [Concomitant]
     Active Substance: LEVOFLOXACIN
  5. NASONEX [Concomitant]
     Active Substance: MOMETASONE FUROATE
  6. Flulaval [Concomitant]
     Indication: Immunisation
  7. METROGEL [Concomitant]
     Active Substance: METRONIDAZOLE
  8. NAPROXEN [Concomitant]
     Active Substance: NAPROXEN
  9. PREDNISONE [Concomitant]
     Active Substance: PREDNISONE
  10. QUASENSE [Concomitant]
     Active Substance: ETHINYL ESTRADIOL\LEVONORGESTREL
  11. SEASONIQUE [Concomitant]
     Active Substance: ETHINYL ESTRADIOL\LEVONORGESTREL

REACTIONS (1)
  - Drug ineffective [Unknown]
